FAERS Safety Report 5405248-5 (Version None)
Quarter: 2007Q3

REPORT INFORMATION
  Report Type: 
  Country: None (occurrence: None)
  Receive Date: 20070803
  Receipt Date: 20070802
  Transmission Date: 20080115
  Serious: Yes (Death, Life-Threatening, Hospitalization)
  Sender: FDA-Public Use
  Company Number: JP-BRISTOL-MYERS SQUIBB COMPANY-13801287

PATIENT
  Age: 66 Year
  Sex: Male
  Weight: 67 kg

DRUGS (33)
  1. PACLITAXEL [Suspect]
     Indication: OESOPHAGEAL CARCINOMA
     Route: 042
     Dates: start: 20070427, end: 20070427
  2. PREDONINE [Suspect]
     Indication: INTERSTITIAL LUNG DISEASE
     Route: 048
     Dates: start: 20070525, end: 20070614
  3. SOLU-CORTEF [Suspect]
     Indication: INTERSTITIAL LUNG DISEASE
     Route: 042
     Dates: start: 20070529, end: 20070529
  4. SOLU-MEDROL [Suspect]
     Indication: INTERSTITIAL LUNG DISEASE
     Route: 042
     Dates: start: 20070523, end: 20070524
  5. AMLODIPINE [Concomitant]
     Indication: HYPERTENSION
     Route: 048
     Dates: start: 20070519, end: 20070614
  6. FAMOTIDINE [Concomitant]
     Indication: GASTRITIS PROPHYLAXIS
     Route: 048
     Dates: start: 20070511, end: 20070614
  7. PURSENNID [Concomitant]
     Indication: CONSTIPATION
     Route: 048
     Dates: start: 20070517, end: 20070610
  8. AMOBAN [Concomitant]
     Indication: INSOMNIA
     Route: 048
     Dates: end: 20070614
  9. VOLTAREN [Concomitant]
     Indication: PYREXIA
     Route: 054
     Dates: start: 20070524, end: 20070601
  10. MODACIN [Concomitant]
     Indication: PNEUMONIA
     Route: 042
     Dates: start: 20070525, end: 20070528
  11. FLURBIPROFEN [Concomitant]
     Indication: CANCER PAIN
     Dates: start: 20070528, end: 20070613
  12. TIENAM [Concomitant]
     Indication: PNEUMONIA
     Route: 042
     Dates: start: 20070529, end: 20070614
  13. PRODIF [Concomitant]
     Indication: PULMONARY MYCOSIS
     Route: 042
     Dates: start: 20070529, end: 20070614
  14. FUNGUARD [Concomitant]
     Indication: PULMONARY MYCOSIS
     Route: 042
     Dates: start: 20070601, end: 20070601
  15. PASIL [Concomitant]
     Indication: PNEUMONIA
     Route: 042
     Dates: start: 20070601, end: 20070601
  16. BROCIN CODEINE [Concomitant]
     Indication: COUGH
     Route: 048
     Dates: start: 20070601, end: 20070614
  17. DECADRON [Concomitant]
     Indication: PREMEDICATION
     Route: 041
     Dates: start: 20070510, end: 20070608
  18. RANITIDINE [Concomitant]
     Indication: PREMEDICATION
     Route: 041
     Dates: start: 20070510
  19. KYTRIL [Concomitant]
     Indication: ANTIEMETIC SUPPORTIVE CARE
     Route: 041
     Dates: start: 20070510
  20. DIPHENHYDRAMINE HCL [Concomitant]
     Indication: PREMEDICATION
     Route: 048
     Dates: start: 20070510
  21. OXYCONTIN [Concomitant]
     Indication: CANCER PAIN
     Route: 048
     Dates: start: 20070501
  22. MORPHINE HCL [Concomitant]
     Indication: CANCER PAIN
     Route: 048
     Dates: start: 20070501
  23. MAGMITT [Concomitant]
     Indication: CONSTIPATION
     Route: 048
  24. LOXONIN [Concomitant]
     Indication: PAIN
     Route: 048
  25. LENDORMIN [Concomitant]
     Indication: INSOMNIA
     Route: 048
  26. LAXOBERON [Concomitant]
     Indication: CONSTIPATION
     Route: 048
     Dates: start: 20070508
  27. ISOPROPYLANTIPYRINE [Concomitant]
     Indication: PAIN
     Route: 048
     Dates: start: 20070510
  28. MEXITIL [Concomitant]
     Indication: PAIN
     Dates: start: 20070513
  29. RINDERON-VG [Concomitant]
     Indication: RASH
     Route: 061
     Dates: start: 20070513
  30. AZUNOL [Concomitant]
     Indication: STOMATITIS
     Route: 002
     Dates: start: 20070513
  31. RABEPRAZOLE SODIUM [Concomitant]
     Indication: GASTRITIS
     Route: 048
     Dates: start: 20070525
  32. MUCOSOLVAN [Concomitant]
     Indication: COUGH
     Route: 048
     Dates: start: 20070525
  33. ROHYPNOL [Concomitant]
     Indication: INSOMNIA
     Route: 048
     Dates: start: 20070427, end: 20070607

REACTIONS (3)
  - MALIGNANT NEOPLASM PROGRESSION [None]
  - RESPIRATORY FAILURE [None]
  - TUBERCULOSIS [None]
